FAERS Safety Report 5800262-X (Version None)
Quarter: 2008Q3

REPORT INFORMATION
  Report Type: 
  Country: None (occurrence: None)
  Receive Date: 20080703
  Receipt Date: 20080626
  Transmission Date: 20090109
  Serious: Yes (Hospitalization)
  Sender: FDA-Public Use
  Company Number: PT-SANOFI-SYNTHELABO-F01200800778

PATIENT
  Sex: Female
  Weight: 56 kg

DRUGS (4)
  1. ONDANSETRON [Concomitant]
     Route: 048
     Dates: start: 20080418
  2. FLUOROURACIL [Suspect]
     Dosage: 2400 MG/M2 AS A 46-HOUR CONTINUOUSLY INFUSION ON DAY 1
     Route: 042
     Dates: start: 20080502, end: 20080504
  3. DOCETAXEL [Suspect]
     Route: 042
     Dates: start: 20080502, end: 20080502
  4. OXALIPLATIN [Suspect]
     Indication: GASTRIC CANCER
     Route: 042
     Dates: start: 20080502, end: 20080502

REACTIONS (1)
  - PERITONEAL ABSCESS [None]
